FAERS Safety Report 8998139 (Version 1)
Quarter: 2013Q1

REPORT INFORMATION
  Report Type: Spontaneous
  Country: US (occurrence: US)
  Receive Date: 20130104
  Receipt Date: 20130104
  Transmission Date: 20140127
  Serious: Yes (Other)
  Sender: FDA-Public Use
  Company Number: US-009507513-1301USA001186

PATIENT
  Age: 57 Year
  Sex: Male

DRUGS (1)
  1. MONTELUKAST SODIUM [Suspect]
     Dosage: 1Q X 1D (ONLY 1 DOSE)

REACTIONS (3)
  - Gastrointestinal disorder [Unknown]
  - Flatulence [Unknown]
  - Haematochezia [Unknown]
